FAERS Safety Report 19654043 (Version 3)
Quarter: 2022Q1

REPORT INFORMATION
  Report Type: Report from Study
  Country: US (occurrence: US)
  Receive Date: 20210804
  Receipt Date: 20220302
  Transmission Date: 20220423
  Serious: Yes (Hospitalization)
  Sender: FDA-Public Use
  Company Number: US-JNJFOC-20210757401

PATIENT
  Age: 58 Year
  Sex: Female
  Weight: 111 kg

DRUGS (2)
  1. DARATUMUMAB [Suspect]
     Active Substance: DARATUMUMAB
     Indication: Plasma cell myeloma
     Dosage: THE LAST DOSE WAS ADMINISTERED ON 15-JUL-2021.
     Route: 058
     Dates: start: 20210603
  2. LENALIDOMIDE [Suspect]
     Active Substance: LENALIDOMIDE
     Indication: Plasma cell myeloma
     Dosage: THE LAST DOSE WAS ADMINISTERED ON 19-JUL-2021.
     Route: 065
     Dates: start: 20210603

REACTIONS (2)
  - Pulmonary embolism [Recovered/Resolved]
  - Large intestine infection [Recovered/Resolved]

NARRATIVE: CASE EVENT DATE: 20210720
